FAERS Safety Report 17414603 (Version 2)
Quarter: 2023Q4

REPORT INFORMATION
  Report Type: Spontaneous
  Country: IT (occurrence: IT)
  Receive Date: 20200213
  Receipt Date: 20231206
  Transmission Date: 20240110
  Serious: Yes (Hospitalization)
  Sender: FDA-Public Use
  Company Number: IT-EMA-DD-20190108-ZAVIOUR_N-120726

PATIENT
  Age: 60 Year
  Sex: Male

DRUGS (10)
  1. MITOXANTRONE [Suspect]
     Active Substance: MITOXANTRONE HYDROCHLORIDE
     Indication: Acute myeloid leukaemia recurrent
     Dosage: 7 MILLIGRAM/SQ. METER
     Route: 065
     Dates: start: 2015
  2. FLUDARABINE [Suspect]
     Active Substance: FLUDARABINE PHOSPHATE
     Indication: Acute myeloid leukaemia recurrent
     Dosage: 40 MILLIGRAM, QD
     Route: 065
     Dates: start: 201805
  3. FLUDARABINE [Suspect]
     Active Substance: FLUDARABINE PHOSPHATE
     Indication: Bone marrow conditioning regimen
     Dosage: 30 MILLIGRAM, QD
     Route: 065
     Dates: start: 2015
  4. IDARUBICIN [Suspect]
     Active Substance: IDARUBICIN
     Indication: Acute myeloid leukaemia recurrent
     Dosage: 15 MILLIGRAM, QD
     Route: 065
     Dates: start: 201805
  5. CYTARABINE [Suspect]
     Active Substance: CYTARABINE
     Indication: Acute myeloid leukaemia
     Dosage: 2000 MILLIGRAM, QD
     Route: 065
     Dates: start: 2015
  6. CYTARABINE [Suspect]
     Active Substance: CYTARABINE
     Dosage: 2000 MILLIGRAM
     Route: 065
     Dates: start: 2015
  7. CYTARABINE [Suspect]
     Active Substance: CYTARABINE
     Dosage: 2000 MILLIGRAM, QD (1 TIME)
     Route: 065
     Dates: start: 201805
  8. FILGRASTIM [Suspect]
     Active Substance: FILGRASTIM
     Indication: Acute myeloid leukaemia recurrent
     Dosage: FROM DAY -1, UNK
     Route: 065
  9. FILGRASTIM [Suspect]
     Active Substance: FILGRASTIM
     Dosage: 40 MILLIGRAM, QD
     Route: 065
     Dates: start: 201805
  10. BUSULFAN [Concomitant]
     Active Substance: BUSULFAN
     Indication: Bone marrow conditioning regimen
     Dosage: UNK
     Route: 065

REACTIONS (7)
  - Acute myeloid leukaemia recurrent [Unknown]
  - Neoplasm recurrence [Unknown]
  - Aplasia [Unknown]
  - Pancytopenia [Unknown]
  - Bone marrow failure [Unknown]
  - Cytopenia [Unknown]
  - Pyrexia [Unknown]

NARRATIVE: CASE EVENT DATE: 20180401
